FAERS Safety Report 25611406 (Version 1)
Quarter: 2025Q3

REPORT INFORMATION
  Report Type: Spontaneous
  Country: US (occurrence: US)
  Receive Date: 20250728
  Receipt Date: 20250728
  Transmission Date: 20251020
  Serious: No
  Sender: BOEHRINGER INGELHEIM
  Company Number: US-Komodo Health-a23aa0000097NifAAE

PATIENT
  Age: 53 Year
  Sex: Female

DRUGS (1)
  1. TRADJENTA [Suspect]
     Active Substance: LINAGLIPTIN
     Indication: Type 2 diabetes mellitus

REACTIONS (4)
  - Tongue neoplasm [Unknown]
  - Speech disorder [Unknown]
  - Dysphagia [Unknown]
  - Post procedural complication [Unknown]

NARRATIVE: CASE EVENT DATE: 20210101
